FAERS Safety Report 8747199 (Version 3)
Quarter: 2014Q3

REPORT INFORMATION
  Report Type: Spontaneous
  Country: US (occurrence: US)
  Receive Date: 20120827
  Receipt Date: 20140916
  Transmission Date: 20150326
  Serious: Yes (Life-Threatening, Hospitalization, Other)
  Sender: FDA-Public Use
  Company Number: US-ASTRAZENECA-2012SE60842

PATIENT
  Age: 743 Month
  Sex: Female

DRUGS (7)
  1. NEXIUM [Suspect]
     Active Substance: ESOMEPRAZOLE MAGNESIUM
     Route: 048
     Dates: end: 201408
  2. LISINOPRIL. [Suspect]
     Active Substance: LISINOPRIL
     Dosage: 20MG TO25 MG UNK
     Route: 048
  3. SYMBICORT [Suspect]
     Active Substance: BUDESONIDE\FORMOTEROL FUMARATE DIHYDRATE
     Dosage: 80-4.5, 2 PUFFS TWO TIMES A DAY
     Route: 055
     Dates: end: 201408
  4. QUETIAPINE [Suspect]
     Active Substance: QUETIAPINE
     Route: 048
  5. SIBCORF [Concomitant]
     Dosage: 160 180 NR
  6. TRAZODONE [Concomitant]
     Active Substance: TRAZODONE HYDROCHLORIDE
  7. BUTALBITAL APAP CAF [Concomitant]
     Dosage: 50 325 40 NR

REACTIONS (2)
  - Apparent death [Unknown]
  - Drug dose omission [Not Recovered/Not Resolved]

NARRATIVE: CASE EVENT DATE: 201408
